FAERS Safety Report 4714960-2 (Version None)
Quarter: 2005Q3

REPORT INFORMATION
  Report Type: 
  Country: None (occurrence: None)
  Receive Date: 20050715
  Receipt Date: 20050630
  Transmission Date: 20060218
  Serious: Yes (Life-Threatening)
  Sender: FDA-Public Use
  Company Number: JP-JNJFOC-20050607369

PATIENT
  Age: 58 Year
  Sex: Female

DRUGS (12)
  1. OFLOCET [Suspect]
     Indication: DRUG USE FOR UNKNOWN INDICATION
     Route: 042
     Dates: start: 20050115, end: 20050115
  2. LASIX [Concomitant]
     Route: 065
  3. ALDACTONE [Concomitant]
     Route: 065
  4. AVLOCARDYL [Concomitant]
     Route: 065
  5. LAROXYL [Concomitant]
     Route: 065
  6. DUPHALAC [Concomitant]
     Route: 065
  7. THIAMINE HCL [Concomitant]
     Route: 065
  8. VITAMIN B6 [Concomitant]
     Route: 065
  9. FORADIL [Concomitant]
     Route: 065
  10. SINGULAIR [Concomitant]
     Route: 065
  11. VENTOLIN [Concomitant]
     Route: 065
  12. VOLTAREN [Concomitant]
     Route: 065

REACTIONS (6)
  - ANAPHYLACTOID REACTION [None]
  - ANGIONEUROTIC OEDEMA [None]
  - ASTHMA [None]
  - DIARRHOEA [None]
  - URTICARIA [None]
  - VOMITING [None]
